FAERS Safety Report 22897879 (Version 3)
Quarter: 2023Q4

REPORT INFORMATION
  Report Type: Spontaneous
  Country: GB (occurrence: GB)
  Receive Date: 20230903
  Receipt Date: 20231120
  Transmission Date: 20240110
  Serious: Yes (Other)
  Sender: FDA-Public Use
  Company Number: GB-MLMSERVICE-20230817-4486494-1

PATIENT
  Age: 31 Year
  Sex: Male
  Weight: 122 kg

DRUGS (8)
  1. OLANZAPINE [Suspect]
     Active Substance: OLANZAPINE
     Indication: Schizophrenia
     Dosage: 300 MILLIGRAM (LONG ACTING)
     Route: 065
     Dates: start: 202108, end: 202110
  2. OLANZAPINE [Suspect]
     Active Substance: OLANZAPINE
     Dosage: 405 MILLIGRAM (LONG ACTING)
     Route: 065
     Dates: start: 202112
  3. OLANZAPINE [Suspect]
     Active Substance: OLANZAPINE
     Dosage: 405 MILLIGRAM (LONG ACTING)
     Route: 065
     Dates: start: 202212
  4. CLOZAPINE [Suspect]
     Active Substance: CLOZAPINE
     Indication: Schizophrenia
     Dosage: 400 MILLIGRAM, ONCE A DAY
     Route: 048
     Dates: start: 202110
  5. AMLODIPINE [Concomitant]
     Active Substance: AMLODIPINE BESYLATE
     Indication: Hypertension
     Dosage: UNK
     Route: 065
  6. SCOPOLAMINE [Concomitant]
     Active Substance: SCOPOLAMINE
     Indication: Product used for unknown indication
     Dosage: UNK
     Route: 065
  7. SENNA [Concomitant]
     Active Substance: SENNA LEAF\SENNOSIDES\SENNOSIDES A AND B
     Indication: Product used for unknown indication
     Dosage: UNK
     Route: 065
  8. DIVALPROEX SODIUM [Concomitant]
     Active Substance: DIVALPROEX SODIUM
     Indication: Schizophrenia
     Dosage: 1500 MILLIGRAM, ONCE A DAY
     Route: 065
     Dates: start: 202009

REACTIONS (4)
  - Weight increased [Recovering/Resolving]
  - Condition aggravated [Recovering/Resolving]
  - Blood triglycerides increased [Unknown]
  - High density lipoprotein decreased [Unknown]

NARRATIVE: CASE EVENT DATE: 20211201
